FAERS Safety Report 11024647 (Version 1)
Quarter: 2015Q2

REPORT INFORMATION
  Report Type: Spontaneous
  Country: US (occurrence: None)
  Receive Date: 20150413
  Receipt Date: 20150413
  Transmission Date: 20150821
  Serious: No
  Sender: FDA-Public Use
  Company Number: None

PATIENT

DRUGS (2)
  1. ACYCLOVIR SODIUM. [Suspect]
     Active Substance: ACYCLOVIR SODIUM
     Dosage: INJECTABLE?INJECTION?1000 MG/20ML ?SINGLE DOSE VIAL
     Route: 042
  2. ONDANSETRON [Suspect]
     Active Substance: ONDANSETRON
     Dosage: INJECTABLE?INJECTION?40MG/20ML ?MULTI-DOSE VIAL
     Route: 042

REACTIONS (1)
  - Product container issue [None]
